FAERS Safety Report 7392195-5 (Version None)
Quarter: 2011Q2

REPORT INFORMATION
  Report Type: 
  Country: None (occurrence: None)
  Receive Date: 20110404
  Receipt Date: 20110325
  Transmission Date: 20111010
  Serious: Yes (Hospitalization)
  Sender: FDA-Public Use
  Company Number: B0709667A

PATIENT
  Sex: Female

DRUGS (1)
  1. TYKERB [Suspect]
     Indication: BREAST CANCER
     Dosage: 2TAB TWICE PER DAY
     Route: 048
     Dates: start: 20110111

REACTIONS (6)
  - PAIN IN EXTREMITY [None]
  - PRURITUS GENERALISED [None]
  - DIZZINESS [None]
  - PRODUCT QUALITY ISSUE [None]
  - HEADACHE [None]
  - NECK PAIN [None]
